FAERS Safety Report 8536591-9 (Version None)
Quarter: 2012Q3

REPORT INFORMATION
  Report Type: 
  Country: None (occurrence: None)
  Receive Date: 20120725
  Receipt Date: 20120713
  Transmission Date: 20120928
  Serious: Yes (Death, Other)
  Sender: FDA-Public Use
  Company Number: JP-ROCHE-1085916

PATIENT
  Sex: Female
  Weight: 37 kg

DRUGS (10)
  1. TS-1 [Suspect]
     Indication: COLON CANCER METASTATIC
     Dosage: DOSAGE IS UNCERTAIN.
     Route: 048
     Dates: start: 20100707, end: 20100901
  2. TS-1 [Suspect]
     Indication: COLON CANCER RECURRENT
     Dosage: DOSAGE IS UNCERTAIN.
     Route: 048
     Dates: start: 20100927, end: 20110506
  3. AVASTIN [Suspect]
     Indication: COLON CANCER METASTATIC
     Route: 041
     Dates: start: 20100927, end: 20120622
  4. TS-1 [Suspect]
     Dosage: DOSAGE IS UNCERTAIN.
     Route: 048
     Dates: start: 20110527, end: 20120622
  5. OXALIPLATIN [Concomitant]
     Indication: COLON CANCER METASTATIC
     Dosage: DOSAGE IS UNCERTAIN.
     Route: 041
     Dates: start: 20100927, end: 20110506
  6. IRINOTECAN HYDROCHLORIDE [Suspect]
     Indication: COLON CANCER METASTATIC
     Dosage: DOSAGE IS UNCERTAIN.
     Route: 041
     Dates: start: 20110527, end: 20120622
  7. DECADRON [Concomitant]
     Indication: PROPHYLAXIS
     Dosage: ADMINISTERING FOR THREE DAYS FROM DRIP DAY
     Route: 048
     Dates: start: 20100927, end: 20120622
  8. PROMACTA [Concomitant]
     Route: 048
     Dates: start: 20100707
  9. AVASTIN [Suspect]
     Indication: COLON CANCER RECURRENT
     Route: 041
     Dates: start: 20110527, end: 20120622
  10. PROTECADIN [Concomitant]
     Route: 048
     Dates: start: 20100707

REACTIONS (7)
  - DECREASED APPETITE [None]
  - HAEMOPTYSIS [None]
  - PULMONARY HAEMORRHAGE [None]
  - ACUTE RESPIRATORY FAILURE [None]
  - PNEUMONIA [None]
  - ENTEROCOLITIS [None]
  - SPINAL COMPRESSION FRACTURE [None]
